FAERS Safety Report 9096559 (Version 1)
Quarter: 2013Q1

REPORT INFORMATION
  Report Type: Spontaneous
  Country: GB (occurrence: GB)
  Receive Date: 20130211
  Receipt Date: 20130211
  Transmission Date: 20140127
  Serious: Yes (Hospitalization)
  Sender: FDA-Public Use
  Company Number: PHFR2013GB001083

PATIENT
  Age: 66 Year
  Sex: Female

DRUGS (9)
  1. OCTREOTIDE [Suspect]
     Indication: INTESTINAL OBSTRUCTION
     Dosage: 50 MCG, MORNING INITIALLY THEN CONVERTED TO CONTINUOUS SUBCUTANEOUS INFUSION
     Route: 058
     Dates: end: 20130118
  2. CYCLIZINE [Concomitant]
     Route: 065
  3. PARACETAMOL [Concomitant]
     Route: 065
  4. HYOSCINE BUTYLBROMIDE [Concomitant]
     Dosage: UNK UKN, UNK
     Route: 065
  5. OMEPRAZOLE [Concomitant]
     Route: 065
  6. AMOXICILLIN\CLAVULANATE POTASSIUM [Concomitant]
     Dosage: UNK
     Route: 065
  7. TEMAZEPAM [Concomitant]
  8. TRIMETHOPRIM [Concomitant]
     Route: 065
  9. LETROZOLE [Concomitant]
     Route: 065

REACTIONS (1)
  - Dyspnoea [Recovered/Resolved]
